FAERS Safety Report 8998725 (Version 8)
Quarter: 2013Q3

REPORT INFORMATION
  Report Type: Spontaneous
  Country: US (occurrence: US)
  Receive Date: 20130103
  Receipt Date: 20130917
  Transmission Date: 20140515
  Serious: No
  Sender: FDA-Public Use
  Company Number: US-VERTEX PHARMACEUTICALS INC.-2013-000069

PATIENT
  Age: 53 Year
  Sex: Male
  Weight: 76 kg

DRUGS (7)
  1. INCIVEK [Suspect]
     Indication: HEPATITIS C
     Dosage: 750 MG, TID
     Route: 048
     Dates: start: 20121219, end: 20130313
  2. PEGASYS [Suspect]
     Indication: HEPATITIS C
     Dosage: 180 ?G, QW
     Route: 058
     Dates: start: 20121219, end: 20130607
  3. RIBAPAK [Suspect]
     Indication: HEPATITIS C
     Dosage: 600 MG, BID
     Route: 048
     Dates: start: 20121219, end: 20130607
  4. LEXAPRO [Concomitant]
     Dosage: 20 MG, QD
     Route: 048
  5. MARIJUANA [Concomitant]
  6. KLONOPIN [Concomitant]
     Indication: ANXIETY
     Dosage: 0.5 MG, PRN
     Route: 048
  7. MIRTAZAPINE [Concomitant]
     Dosage: 15 MG,QHS
     Route: 048

REACTIONS (12)
  - Depression [Not Recovered/Not Resolved]
  - Mania [Recovered/Resolved]
  - Vision blurred [Recovered/Resolved]
  - Depressed level of consciousness [Not Recovered/Not Resolved]
  - Memory impairment [Not Recovered/Not Resolved]
  - Feeling abnormal [Not Recovered/Not Resolved]
  - Mood swings [Recovered/Resolved]
  - Decreased appetite [Recovered/Resolved]
  - Hair texture abnormal [Not Recovered/Not Resolved]
  - Diarrhoea [Unknown]
  - Anorectal discomfort [Unknown]
  - Nausea [Not Recovered/Not Resolved]
